FAERS Safety Report 13072571 (Version 2)
Quarter: 2018Q1

REPORT INFORMATION
  Report Type: Spontaneous
  Country: US (occurrence: US)
  Receive Date: 20161229
  Receipt Date: 20180115
  Transmission Date: 20180508
  Serious: Yes (Other)
  Sender: FDA-Public Use
  Company Number: US-SA-2016SA153977

PATIENT
  Age: 50 Year
  Sex: Female
  Weight: 61.23 kg

DRUGS (2)
  1. TAXOTERE [Suspect]
     Active Substance: DOCETAXEL
     Indication: BREAST CANCER
     Route: 042
     Dates: start: 20031009, end: 20031009
  2. TAXOTERE [Suspect]
     Active Substance: DOCETAXEL
     Indication: BREAST CANCER
     Route: 042
     Dates: start: 20031120, end: 20031120

REACTIONS (10)
  - Emotional distress [Unknown]
  - Hair colour changes [Recovered/Resolved]
  - Injury [Unknown]
  - Anxiety [Unknown]
  - Pain [Unknown]
  - Alopecia [Recovered/Resolved]
  - Hair texture abnormal [Recovered/Resolved]
  - Psychological trauma [Unknown]
  - Impaired work ability [Unknown]
  - Impaired quality of life [Unknown]

NARRATIVE: CASE EVENT DATE: 20040520
